FAERS Safety Report 7973239-6 (Version None)
Quarter: 2011Q4

REPORT INFORMATION
  Report Type: 
  Country: None (occurrence: None)
  Receive Date: 20111213
  Receipt Date: 20111208
  Transmission Date: 20120403
  Serious: Yes (Other)
  Sender: FDA-Public Use
  Company Number: PHHY2008CA31149

PATIENT
  Sex: Female

DRUGS (1)
  1. ZOLEDRONOC ACID [Suspect]
     Indication: OSTEOPOROSIS
     Dosage: UNK UKN, UNK
     Route: 042
     Dates: start: 20081125

REACTIONS (8)
  - EXTRAVASATION [None]
  - CONTUSION [None]
  - ANXIETY [None]
  - NECK PAIN [None]
  - FIBROMYALGIA [None]
  - BACK PAIN [None]
  - ARTHRALGIA [None]
  - LOCAL SWELLING [None]
